FAERS Safety Report 17476157 (Version 1)
Quarter: 2020Q1

REPORT INFORMATION
  Report Type: Report from Study
  Country: CA (occurrence: CA)
  Receive Date: 20200228
  Receipt Date: 20200228
  Transmission Date: 20200409
  Serious: Yes (Other)
  Sender: FDA-Public Use
  Company Number: CA-JNJFOC-20190708567

PATIENT
  Age: 58 Year
  Sex: Male

DRUGS (2)
  1. TREMFYA [Concomitant]
     Active Substance: GUSELKUMAB
     Route: 065
  2. STELARA [Suspect]
     Active Substance: USTEKINUMAB
     Indication: PSORIASIS
     Dosage: WILL START TREMFYA
     Route: 058
     Dates: start: 20170126, end: 20190704

REACTIONS (4)
  - Fall [Unknown]
  - Drug ineffective [Unknown]
  - Peripheral swelling [Unknown]
  - Seizure [Unknown]

NARRATIVE: CASE EVENT DATE: 20190812
